FAERS Safety Report 20356717 (Version 1)
Quarter: 2022Q1

REPORT INFORMATION
  Report Type: Spontaneous
  Country: None (occurrence: US)
  Receive Date: 20220120
  Receipt Date: 20220120
  Transmission Date: 20220423
  Serious: No
  Sender: FDA-Public Use
  Company Number: US-Akron, Inc.-2124144

PATIENT
  Age: 21 Year
  Sex: Female

DRUGS (1)
  1. MYORISAN [Suspect]
     Active Substance: ISOTRETINOIN
     Indication: Acne
     Route: 048
     Dates: start: 20210624, end: 20211111

REACTIONS (6)
  - Lip dry [Recovered/Resolved]
  - Chapped lips [Recovered/Resolved]
  - Dry skin [Recovering/Resolving]
  - Dry eye [Recovering/Resolving]
  - Eye irritation [Recovered/Resolved]
  - Vision blurred [Recovered/Resolved]
